FAERS Safety Report 4910695-1 (Version None)
Quarter: 2006Q1

REPORT INFORMATION
  Report Type: 
  Country: None (occurrence: None)
  Receive Date: 20060214
  Receipt Date: 20060203
  Transmission Date: 20060701
  Serious: Yes (Other)
  Sender: FDA-Public Use
  Company Number: PHEH2006US01767

PATIENT
  Sex: Male

DRUGS (1)
  1. CLOZAPINE [Suspect]
     Indication: SCHIZOPHRENIA
     Dosage: UNK, UNK

REACTIONS (3)
  - GRANULOCYTOPENIA [None]
  - LEUKOPENIA [None]
  - NON-HODGKIN'S LYMPHOMA [None]
